FAERS Safety Report 20490150 (Version 1)
Quarter: 2022Q1

REPORT INFORMATION
  Report Type: Spontaneous
  Country: ES (occurrence: None)
  Receive Date: 20220218
  Receipt Date: 20220218
  Transmission Date: 20220423
  Serious: Yes (Other)
  Sender: FDA-Public Use
  Company Number: 2022A067880

PATIENT
  Age: 70 Year
  Sex: Male

DRUGS (1)
  1. DAPAGLIFLOZIN [Suspect]
     Active Substance: DAPAGLIFLOZIN
     Indication: Type 2 diabetes mellitus
     Route: 048
     Dates: start: 20210902, end: 20211007

REACTIONS (2)
  - Anal fissure [Recovering/Resolving]
  - Genital herpes [Recovering/Resolving]

NARRATIVE: CASE EVENT DATE: 20210901
